FAERS Safety Report 17976736 (Version 1)
Quarter: 2020Q3

REPORT INFORMATION
  Report Type: Spontaneous
  Country: PT (occurrence: PT)
  Receive Date: 20200703
  Receipt Date: 20200703
  Transmission Date: 20201103
  Serious: Yes (Other)
  Sender: FDA-Public Use
  Company Number: PT-HIKMA PHARMACEUTICALS USA INC.-PT-H14001-20-51625

PATIENT
  Age: 29 Year
  Sex: Female

DRUGS (6)
  1. MIDAZOLAM. [Suspect]
     Active Substance: MIDAZOLAM
     Indication: ADENOTONSILLECTOMY
     Route: 065
     Dates: start: 2014, end: 2014
  2. PROPOFOL. [Concomitant]
     Active Substance: PROPOFOL
     Indication: ADENOTONSILLECTOMY
     Route: 042
     Dates: start: 2014, end: 2014
  3. ROCURONIUM BROMIDE. [Suspect]
     Active Substance: ROCURONIUM BROMIDE
     Indication: ADENOTONSILLECTOMY
     Route: 042
     Dates: start: 2014, end: 2014
  4. ATROPINE. [Concomitant]
     Active Substance: ATROPINE
     Indication: ADENOTONSILLECTOMY
     Route: 065
     Dates: start: 2014, end: 2014
  5. LIDOCAINE. [Concomitant]
     Active Substance: LIDOCAINE
     Indication: ADENOTONSILLECTOMY
     Route: 065
     Dates: start: 2014, end: 2014
  6. MORPHINE [Concomitant]
     Active Substance: MORPHINE
     Indication: ADENOTONSILLECTOMY
     Route: 065
     Dates: start: 2014, end: 2014

REACTIONS (2)
  - Laryngeal oedema [Recovered/Resolved]
  - Angioedema [Recovered/Resolved]

NARRATIVE: CASE EVENT DATE: 2014
